FAERS Safety Report 21481169 (Version 1)
Quarter: 2022Q4

REPORT INFORMATION
  Report Type: Spontaneous
  Country: US (occurrence: None)
  Receive Date: 20221019
  Receipt Date: 20221019
  Transmission Date: 20230113
  Serious: Yes (Hospitalization)
  Sender: FDA-Public Use
  Company Number: None

PATIENT
  Age: 82 Year
  Sex: Female
  Weight: 68.95 kg

DRUGS (10)
  1. LENALIDOMIDE [Suspect]
     Active Substance: LENALIDOMIDE
     Indication: Plasma cell myeloma
     Dosage: 5MG ONCE DAILY ORA?
     Route: 048
     Dates: start: 202206
  2. DEXAMETHASONE [Suspect]
     Active Substance: DEXAMETHASONE
     Indication: Plasma cell myeloma
     Dosage: 40MG ONCE WEEK ORAL
     Route: 048
     Dates: start: 202206
  3. ACARBOSE [Concomitant]
     Active Substance: ACARBOSE
  4. AMLODIPINE [Concomitant]
     Active Substance: AMLODIPINE BESYLATE
  5. ASPIRIN [Concomitant]
     Active Substance: ASPIRIN
  6. GLIMEPIRIDE [Concomitant]
     Active Substance: GLIMEPIRIDE
  7. LOSARTAN [Concomitant]
     Active Substance: LOSARTAN
  8. LUMIGAN [Concomitant]
     Active Substance: BIMATOPROST
  9. METFORMIN [Concomitant]
     Active Substance: METFORMIN HYDROCHLORIDE
  10. ROSUVASTATIN [Concomitant]
     Active Substance: ROSUVASTATIN

REACTIONS (2)
  - Urinary tract infection [None]
  - Asthenia [None]
